FAERS Safety Report 6779721-1 (Version None)
Quarter: 2010Q2

REPORT INFORMATION
  Report Type: 
  Country: None (occurrence: None)
  Receive Date: 20100618
  Receipt Date: 20100615
  Transmission Date: 20101027
  Serious: Yes (Death, Other)
  Sender: FDA-Public Use
  Company Number: PHEH2010US02746

PATIENT
  Sex: Male
  Weight: 64.139 kg

DRUGS (7)
  1. ZOMETA [Suspect]
     Indication: METASTASES TO BONE
     Dosage: 4 MG, QMO
     Route: 042
     Dates: start: 20090714, end: 20091021
  2. TAXOTERE [Concomitant]
  3. COMPAZINE [Concomitant]
     Indication: NAUSEA
     Dosage: 10 MG, PRN
     Route: 048
     Dates: start: 20091029, end: 20091111
  4. DEXAMETHASONE [Concomitant]
     Dosage: 4 MG, BID
     Route: 048
     Dates: start: 20090928, end: 20091111
  5. TEMAZEPAM [Concomitant]
     Indication: SLEEP DISORDER
     Dosage: 15 MG DAILY
     Route: 048
     Dates: start: 20090923, end: 20091111
  6. VICODIN [Concomitant]
     Indication: PAIN
     Dosage: EVERY 4-6 HR PRN
     Route: 048
     Dates: start: 20090804, end: 20091111
  7. ZANTAC [Concomitant]
     Dosage: DAILY PRN
     Route: 048

REACTIONS (7)
  - ASPARTATE AMINOTRANSFERASE INCREASED [None]
  - ASTHENIA [None]
  - BACK PAIN [None]
  - BLOOD ALKALINE PHOSPHATASE INCREASED [None]
  - DEATH [None]
  - FATIGUE [None]
  - HAEMOGLOBIN DECREASED [None]
